FAERS Safety Report 9564187 (Version 1)
Quarter: 2013Q3

REPORT INFORMATION
  Report Type: Report from Study
  Country: US (occurrence: US)
  Receive Date: 20130930
  Receipt Date: 20130930
  Transmission Date: 20140515
  Serious: Yes (Hospitalization)
  Sender: FDA-Public Use
  Company Number: US-ROCHE-1281972

PATIENT
  Age: 64 Year
  Sex: Female
  Weight: 79.8 kg

DRUGS (6)
  1. TRASTUZUMAB [Suspect]
     Indication: OESOPHAGEAL ADENOCARCINOMA
     Dosage: OVER 90 MIN ON DAY 1, LAST ADMINISTERED DATE 27/AUG/2013
     Route: 042
     Dates: start: 20130722
  2. TRASTUZUMAB [Suspect]
     Dosage: OVER 30-60 MIN ON DAYS 8, 15, 22, 29 AND 36
     Route: 042
  3. TRASTUZUMAB [Suspect]
     Dosage: OVER 30-90 MIN ON DAY 57
     Route: 042
  4. TRASTUZUMAB [Suspect]
     Dosage: OVER 30-90 MIN ON DAY 1
     Route: 042
  5. CARBOPLATIN [Suspect]
     Indication: OESOPHAGEAL ADENOCARCINOMA
     Dosage: OVER 1 HR ON DAYS 1, 8, 15, 22, 29 AND 36, LAST ADMINISTERED DATE 20/AUG/2013
     Route: 065
  6. PACLITAXEL [Suspect]
     Indication: OESOPHAGEAL ADENOCARCINOMA
     Dosage: OVER 1 HR ON DAYS 1, 8, 15, 22, 29 AND 36, LAST ADMINISTERED DATE 20/AUG/2013
     Route: 065

REACTIONS (5)
  - Febrile neutropenia [Unknown]
  - Dehydration [Unknown]
  - Neutrophil count decreased [Unknown]
  - White blood cell count decreased [Unknown]
  - Sepsis [Unknown]
